FAERS Safety Report 6490807-1 (Version None)
Quarter: 2009Q4

REPORT INFORMATION
  Report Type: 
  Country: None (occurrence: None)
  Receive Date: 20091208
  Receipt Date: 20091126
  Transmission Date: 20100525
  Serious: No
  Sender: FDA-Public Use
  Company Number: 2009029319

PATIENT
  Sex: Female

DRUGS (2)
  1. FENTORA [Suspect]
     Indication: MIGRAINE
     Dosage: (400 MCG), BU
     Dates: start: 20070101
  2. METHADONE (METHADONE) [Concomitant]

REACTIONS (2)
  - DRUG PRESCRIBING ERROR [None]
  - OFF LABEL USE [None]
